FAERS Safety Report 10780499 (Version 1)
Quarter: 2015Q1

REPORT INFORMATION
  Report Type: Spontaneous
  Country: US (occurrence: US)
  Receive Date: 20150210
  Receipt Date: 20150210
  Transmission Date: 20150721
  Serious: No
  Sender: FDA-Public Use
  Company Number: US-GLAXOSMITHKLINE-A1081189B

PATIENT

DRUGS (1)
  1. SEREVENT DISKUS [Suspect]
     Active Substance: SALMETEROL XINAFOATE
     Indication: ASTHMA
     Dosage: UNKNOWN DOSING
     Route: 065

REACTIONS (3)
  - Live birth [Unknown]
  - Uterine contractions during pregnancy [Recovered/Resolved]
  - Exposure during pregnancy [Unknown]
